FAERS Safety Report 6823731-2 (Version None)
Quarter: 2010Q3

REPORT INFORMATION
  Report Type: 
  Country: None (occurrence: None)
  Receive Date: 20100708
  Receipt Date: 20060901
  Transmission Date: 20110219
  Serious: No
  Sender: FDA-Public Use
  Company Number: US-PFIZER INC-2006108788

PATIENT
  Sex: Female
  Weight: 73.48 kg

DRUGS (6)
  1. CHANTIX [Suspect]
     Indication: EX-TOBACCO USER
     Dates: start: 20060828
  2. ZOCOR [Concomitant]
  3. ALTACE [Concomitant]
  4. ACETYLSALICYLIC ACID [Concomitant]
  5. XALATAN [Concomitant]
  6. EPINASTINE HYDROCHLORIDE [Concomitant]

REACTIONS (4)
  - DRUG ADMINISTRATION ERROR [None]
  - HEADACHE [None]
  - INSOMNIA [None]
  - NAUSEA [None]
